FAERS Safety Report 19502532 (Version 2)
Quarter: 2021Q3

REPORT INFORMATION
  Report Type: Report from Study
  Country: DE (occurrence: DE)
  Receive Date: 20210707
  Receipt Date: 20210727
  Transmission Date: 20211014
  Serious: Yes (Hospitalization, Other)
  Sender: FDA-Public Use
  Company Number: DE-PUMA BIOTECHNOLOGY, LTD.-2021-PUM-DE003790

PATIENT
  Age: 58 Year
  Sex: Female
  Weight: 65 kg

DRUGS (2)
  1. NERATINIB [Suspect]
     Active Substance: NERATINIB
     Indication: BREAST CANCER
     Dosage: 160 MG, QD (1/DAY)
     Route: 048
  2. NERATINIB [Suspect]
     Active Substance: NERATINIB
     Dosage: 240 MG, QD (1/DAY)
     Route: 048
     Dates: start: 20210407, end: 20210506

REACTIONS (4)
  - Off label use [Unknown]
  - Diarrhoea [Recovered/Resolved]
  - Renal failure [Unknown]
  - Underdose [Unknown]

NARRATIVE: CASE EVENT DATE: 20210412
